FAERS Safety Report 9373900 (Version 1)
Quarter: 2013Q2

REPORT INFORMATION
  Report Type: Spontaneous
  Country: US (occurrence: US)
  Receive Date: 20130628
  Receipt Date: 20130628
  Transmission Date: 20140414
  Serious: No
  Sender: FDA-Public Use
  Company Number: US-009507513-1306USA008723

PATIENT
  Age: 34 Year
  Sex: Female

DRUGS (2)
  1. NEXPLANON [Suspect]
     Indication: CONTRACEPTION
     Dosage: UNK
     Route: 059
     Dates: start: 20130611
  2. IMPLANON [Suspect]
     Dosage: UNK
     Route: 059
     Dates: start: 20100820, end: 20130611

REACTIONS (1)
  - Implant site vesicles [Not Recovered/Not Resolved]
